FAERS Safety Report 5631065-7 (Version None)
Quarter: 2008Q1

REPORT INFORMATION
  Report Type: 
  Country: None (occurrence: None)
  Receive Date: 20080219
  Receipt Date: 20080208
  Transmission Date: 20080703
  Serious: Yes (Hospitalization)
  Sender: FDA-Public Use
  Company Number: JP-PFIZER INC-2008001514

PATIENT
  Sex: Male
  Weight: 65 kg

DRUGS (15)
  1. IRINOTECAN HCL [Suspect]
     Indication: COLON CANCER
     Route: 042
     Dates: start: 20071210, end: 20071210
  2. TEGAFUR/GIMERACIL/OTERACIL POTASSIUM [Suspect]
     Indication: COLON CANCER
     Route: 048
     Dates: start: 20071210, end: 20071216
  3. TEGAFUR/GIMERACIL/OTERACIL POTASSIUM [Suspect]
     Route: 048
     Dates: start: 20071217, end: 20071217
  4. PARIET [Concomitant]
     Indication: GASTRITIS PROPHYLAXIS
     Dosage: DAILY DOSE:10MG
     Route: 048
     Dates: start: 20070312, end: 20070522
  5. MAGNESIUM OXIDE [Concomitant]
     Indication: CONSTIPATION
     Dosage: DAILY DOSE:1.5GRAM
     Route: 048
     Dates: start: 20070203
  6. ENALAPRIL MALEATE [Concomitant]
     Indication: HYPERTENSION
     Dosage: DAILY DOSE:10MG
     Route: 048
  7. LAC B [Concomitant]
     Indication: GASTROINTESTINAL DISORDER
     Dosage: DAILY DOSE:3GRAM
     Route: 048
     Dates: start: 20070501, end: 20070521
  8. LOXOPROFEN SODIUM [Concomitant]
     Indication: PAIN
     Dosage: DAILY DOSE:180MG
     Route: 048
     Dates: end: 20070521
  9. ALL OTHER THERAPEUTIC PRODUCTS [Concomitant]
     Indication: GALLBLADDER DISORDER
     Dosage: TEXT:6 DF
     Route: 048
     Dates: start: 20071203
  10. URSO 250 [Concomitant]
     Indication: GALLBLADDER DISORDER
     Dosage: DAILY DOSE:300MG
     Route: 048
     Dates: start: 20071203
  11. LASIX [Concomitant]
     Indication: OEDEMA
     Dosage: DAILY DOSE:20MG
     Route: 048
     Dates: start: 20071029
  12. HACHIAZULE [Concomitant]
     Indication: STOMATITIS
     Dosage: TEXT:OPTIMUM DOSE
     Route: 048
     Dates: start: 20070709
  13. GLYCERIN [Concomitant]
     Indication: STOMATITIS
     Dosage: TEXT:OPTIMUM DOSE
     Route: 061
     Dates: start: 20070717
  14. XYLOCAINE [Concomitant]
     Indication: STOMATITIS
     Dosage: TEXT:OPTIMUM DOSE
     Route: 061
  15. DEXAMETHASONE TAB [Concomitant]
     Indication: STOMATITIS
     Dosage: TEXT:OPTIMUM DOSE
     Route: 061
     Dates: start: 20070717

REACTIONS (2)
  - HEPATIC ENCEPHALOPATHY [None]
  - HYPERAMMONAEMIA [None]
